FAERS Safety Report 13767374 (Version 1)
Quarter: 2017Q3

REPORT INFORMATION
  Report Type: Spontaneous
  Country: GB (occurrence: GB)
  Receive Date: 20170719
  Receipt Date: 20170719
  Transmission Date: 20171127
  Serious: Yes (Other)
  Sender: FDA-Public Use
  Company Number: GB-JNJFOC-20170709509

PATIENT
  Age: 68 Year
  Sex: Female
  Weight: 81 kg

DRUGS (6)
  1. IBUPROFEN. [Suspect]
     Active Substance: IBUPROFEN
     Indication: PRODUCT USED FOR UNKNOWN INDICATION
     Route: 065
     Dates: start: 20170630
  2. IBUPROFEN. [Suspect]
     Active Substance: IBUPROFEN
     Route: 065
  3. RAMIPRIL. [Concomitant]
     Active Substance: RAMIPRIL
     Indication: PRODUCT USED FOR UNKNOWN INDICATION
     Dosage: 1 DOSE (STRENGTH AND UNITS UNSPECIFIED), CUMULATIVE DOSE TO FIRST REACTION. 211.95833.
     Route: 065
     Dates: start: 20161130
  4. AMOXICILLIN. [Concomitant]
     Active Substance: AMOXICILLIN
     Indication: PRODUCT USED FOR UNKNOWN INDICATION
     Dosage: 1 DOSE (STRENGTH AND UNITS UNSPECIFIED) 3 TIMES DAILY. CUMULATIVE DOSE TO FIRST REACTION. 18.
     Route: 065
     Dates: start: 20170624
  5. BENDROFLUMETHIAZIDE [Concomitant]
     Active Substance: BENDROFLUMETHIAZIDE
     Indication: PRODUCT USED FOR UNKNOWN INDICATION
     Dosage: 1 DOSE (STRENGTH AND UNITS UNSPECIFIED) ONCE DAILY, CUMULATIVE DOSE TO FIRST REACTION 211.958333
     Route: 065
     Dates: start: 20161130
  6. COCODAMOL [Concomitant]
     Active Substance: ACETAMINOPHEN\CODEINE PHOSPHATE
     Indication: PRODUCT USED FOR UNKNOWN INDICATION
     Dosage: 2 DOSES (STRENGTH AND UNITS UNSPECIFIED) AS REQUIRED FOUR TIMES DAILY.
     Route: 065
     Dates: start: 20170624, end: 20170628

REACTIONS (1)
  - Acute kidney injury [Recovered/Resolved]

NARRATIVE: CASE EVENT DATE: 20170630
